FAERS Safety Report 16735431 (Version 1)
Quarter: 2019Q3

REPORT INFORMATION
  Report Type: Spontaneous
  Country: US (occurrence: US)
  Receive Date: 20190708
  Receipt Date: 20190708
  Transmission Date: 20191005
  Serious: Yes (Hospitalization, Disabling)
  Sender: FDA-Public Use
  Company Number: None

PATIENT
  Age: 67 Year
  Sex: Female

DRUGS (1)
  1. BEVACIZUMAB 1.25 MG/0.05ML [Suspect]
     Active Substance: BEVACIZUMAB
     Indication: MACULAR OEDEMA
     Dosage: ?          OTHER FREQUENCY:ONCE MONTH ;?
     Route: 031
     Dates: start: 20190523

REACTIONS (8)
  - Eye pain [None]
  - Endophthalmitis [None]
  - Visual acuity reduced [None]
  - Device malfunction [None]
  - Lenticular injury [None]
  - Photophobia [None]
  - Needle issue [None]
  - Anaphylactic reaction [None]

NARRATIVE: CASE EVENT DATE: 20190523
